FAERS Safety Report 13163474 (Version 1)
Quarter: 2017Q1

REPORT INFORMATION
  Report Type: Spontaneous
  Country: US (occurrence: US)
  Receive Date: 20170125
  Receipt Date: 20170125
  Transmission Date: 20170428
  Serious: Yes (Hospitalization)
  Sender: FDA-Public Use
  Company Number: None

PATIENT
  Age: 85 Year
  Sex: Male
  Weight: 79.7 kg

DRUGS (1)
  1. APIXABAN [Suspect]
     Active Substance: APIXABAN
     Indication: ATRIAL FIBRILLATION
     Dosage: MG BID  PO
     Route: 048
     Dates: start: 20160512

REACTIONS (2)
  - Haemoglobin decreased [None]
  - Skin haemorrhage [None]

NARRATIVE: CASE EVENT DATE: 20161019
